FAERS Safety Report 10418971 (Version 1)
Quarter: 2014Q2

REPORT INFORMATION
  Report Type: Spontaneous
  Country: US (occurrence: None)
  Receive Date: 20140625
  Receipt Date: 20140625
  Transmission Date: 20141212
  Serious: No
  Sender: FDA-Public Use
  Company Number: A-US2014-95601

PATIENT
  Age: 50 Year
  Sex: Female

DRUGS (1)
  1. OPSUMIT [Suspect]
     Indication: COR PULMONALE CHRONIC
     Route: 048
     Dates: start: 20131226

REACTIONS (1)
  - Dyspnoea [None]
